FAERS Safety Report 7424502-9 (Version None)
Quarter: 2011Q2

REPORT INFORMATION
  Report Type: 
  Country: None (occurrence: None)
  Receive Date: 20110419
  Receipt Date: 20110414
  Transmission Date: 20111010
  Serious: Yes (Other)
  Sender: FDA-Public Use
  Company Number: US-AMGEN-USASP2011019944

PATIENT
  Age: 11 Year
  Sex: Female

DRUGS (3)
  1. DOXORUBICIN HCL [Concomitant]
     Dosage: UNK
     Dates: start: 20110410
  2. IFOSFAMIDE [Concomitant]
     Dosage: UNK
     Dates: start: 20110410
  3. NEULASTA [Suspect]
     Indication: CHEMOTHERAPY
     Dosage: 6 MG, UNK
     Dates: start: 20110411

REACTIONS (3)
  - RASH ERYTHEMATOUS [None]
  - PRURITUS [None]
  - URTICARIA [None]
